FAERS Safety Report 8924589 (Version 1)
Quarter: 2012Q4

REPORT INFORMATION
  Report Type: 
  Country: US (occurrence: US)
  Receive Date: 20121126
  Receipt Date: 20121126
  Transmission Date: 20130627
  Serious: No
  Sender: FDA-Public Use
  Company Number: US-BRISTOL-MYERS SQUIBB COMPANY-16849275

PATIENT
  Age: 61 Year
  Sex: Female
  Weight: 94.33 kg

DRUGS (9)
  1. KOMBIGLYZE XR [Suspect]
     Indication: TYPE 2 DIABETES MELLITUS
     Dosage: 1df: 5-1000mg 2 cap
  2. PRAVASTATIN SODIUM [Suspect]
  3. ASPIRIN [Concomitant]
     Dosage: Tab
  4. MULTIVITAMINS [Concomitant]
     Dosage: Tab
  5. NITROSTAT [Concomitant]
  6. CITALOPRAM HYDROBROMIDE [Concomitant]
  7. LEVOTHYROXINE SODIUM [Concomitant]
     Dosage: Tab
  8. NEXIUM [Concomitant]
  9. METOPROLOL TARTRATE TABS 100MG [Concomitant]

REACTIONS (3)
  - Type V hyperlipidaemia [Unknown]
  - Diabetes mellitus inadequate control [Unknown]
  - Vitamin D deficiency [Unknown]
